FAERS Safety Report 6304048-1 (Version None)
Quarter: 2009Q3

REPORT INFORMATION
  Report Type: 
  Country: None (occurrence: None)
  Receive Date: 20090810
  Receipt Date: 20090810
  Transmission Date: 20100115
  Serious: Yes (Hospitalization)
  Sender: FDA-Public Use
  Company Number: None

PATIENT
  Age: 65 Year
  Sex: Female
  Weight: 70 kg

DRUGS (3)
  1. LISINOPRIL [Suspect]
     Indication: HYPERTENSION
     Dosage: 30 MG DAILY
     Dates: start: 20090709, end: 20090731
  2. LEVOTHYROXINE [Concomitant]
  3. PANTOPRAZOLE SODIUM [Concomitant]

REACTIONS (5)
  - ANGIOEDEMA [None]
  - DYSPNOEA [None]
  - LIP SWELLING [None]
  - PNEUMONIA ASPIRATION [None]
  - SWOLLEN TONGUE [None]
